FAERS Safety Report 15918080 (Version 3)
Quarter: 2019Q1

REPORT INFORMATION
  Report Type: Spontaneous
  Country: US (occurrence: US)
  Receive Date: 20190205
  Receipt Date: 20190331
  Transmission Date: 20190417
  Serious: Yes (Other)
  Sender: FDA-Public Use
  Company Number: US-AMGEN-USASP2019015309

PATIENT
  Sex: Female

DRUGS (1)
  1. PROLIA [Suspect]
     Active Substance: DENOSUMAB
     Indication: OSTEOPOROSIS POSTMENOPAUSAL
     Dosage: UNK UNK, Q6MO
     Route: 065
     Dates: end: 2018

REACTIONS (10)
  - Pain in jaw [Recovering/Resolving]
  - Bladder disorder [Unknown]
  - Nausea [Unknown]
  - Meningioma [Unknown]
  - Large intestine polyp [Unknown]
  - Stool analysis abnormal [Not Recovered/Not Resolved]
  - Impaired healing [Unknown]
  - Feeling abnormal [Unknown]
  - Abdominal discomfort [Unknown]
  - Skin cancer [Unknown]
